FAERS Safety Report 6970514-9 (Version None)
Quarter: 2010Q3

REPORT INFORMATION
  Report Type: 
  Country: None (occurrence: None)
  Receive Date: 20100908
  Receipt Date: 20100903
  Transmission Date: 20110219
  Serious: Yes (Death)
  Sender: FDA-Public Use
  Company Number: CN-ROCHE-724243

PATIENT
  Sex: Female
  Weight: 13 kg

DRUGS (6)
  1. ROCEPHIN [Suspect]
     Indication: ANTI-INFECTIVE THERAPY
     Route: 041
     Dates: start: 20100423
  2. GANCICLOVIR [Concomitant]
     Indication: VIRAL INFECTION
     Dosage: 10% GS 250ML/GANCICLOVIR 75MG
     Route: 041
     Dates: start: 20100820, end: 20100823
  3. GANCICLOVIR [Concomitant]
     Dosage: 10% GS 100ML/GANCICLOVIR 75MG
     Route: 041
     Dates: start: 20100823
  4. UNSPECIFIED DRUG [Concomitant]
     Indication: PRODUCT USED FOR UNKNOWN INDICATION
     Dosage: 10% GS 100ML + VIT C 1G + WATER-SOLUBLE VITAMINS 1.5G + COMPLEX CO0.1MG
     Route: 041
     Dates: start: 20100815, end: 20100823
  5. UNSPECIFIED DRUG [Concomitant]
     Dosage: VIDARABINE MONOPHOSPHATE
     Route: 041
     Dates: start: 20100815, end: 20100823
  6. AZITHROMYCIN [Concomitant]
     Indication: MYCOPLASMA INFECTION
     Dosage: 10%GS250ML+AZITHROMYCIN 0.125G
     Route: 041
     Dates: start: 20100818, end: 20100823

REACTIONS (4)
  - ASPHYXIA [None]
  - CYANOSIS [None]
  - MULTI-ORGAN FAILURE [None]
  - PERIPHERAL COLDNESS [None]
